FAERS Safety Report 24179969 (Version 2)
Quarter: 2024Q3

REPORT INFORMATION
  Report Type: Spontaneous
  Country: GB (occurrence: GB)
  Receive Date: 20240806
  Receipt Date: 20240820
  Transmission Date: 20241017
  Serious: Yes (Other)
  Sender: BAYER
  Company Number: GB-BAYER-2024A109298

PATIENT
  Age: 28 Year
  Sex: Female

DRUGS (1)
  1. MIRENA [Suspect]
     Active Substance: LEVONORGESTREL
     Dosage: 20?G/DAY
     Route: 015
     Dates: start: 20221214, end: 20240617

REACTIONS (10)
  - Perinatal depression [Recovering/Resolving]
  - Anxiety [Recovering/Resolving]
  - Palpitations [Recovering/Resolving]
  - Insomnia [Recovering/Resolving]
  - Rapid eye movements sleep abnormal [Recovering/Resolving]
  - Weight decreased [Recovering/Resolving]
  - Ovulation pain [Recovering/Resolving]
  - Headache [Recovering/Resolving]
  - Blepharitis [Recovering/Resolving]
  - Genital haemorrhage [Recovering/Resolving]

NARRATIVE: CASE EVENT DATE: 20230604
